FAERS Safety Report 4353216-7 (Version None)
Quarter: 2004Q2

REPORT INFORMATION
  Report Type: 
  Country: None (occurrence: None)
  Receive Date: 20040503
  Receipt Date: 20040503
  Transmission Date: 20050107
  Serious: Yes (Hospitalization)
  Sender: FDA-Public Use
  Company Number: None

PATIENT
  Age: 61 Year
  Sex: Male

DRUGS (3)
  1. LITHIUM CARBONATE [Suspect]
     Indication: BIPOLAR DISORDER
  2. SEROQUEL [Concomitant]
  3. LISINOPRIL [Concomitant]

REACTIONS (3)
  - DRUG LEVEL INCREASED [None]
  - MENTAL STATUS CHANGES [None]
  - TREMOR [None]
